FAERS Safety Report 16296599 (Version 1)
Quarter: 2019Q2

REPORT INFORMATION
  Report Type: Spontaneous
  Country: US (occurrence: US)
  Receive Date: 20190509
  Receipt Date: 20190509
  Transmission Date: 20190711
  Serious: Yes (Other)
  Sender: FDA-Public Use
  Company Number: None

PATIENT
  Sex: Female
  Weight: 95.2 kg

DRUGS (13)
  1. SENNA [Concomitant]
     Active Substance: SENNA LEAF\SENNOSIDES\SENNOSIDES A AND B
  2. RANITIDINE. [Concomitant]
     Active Substance: RANITIDINE
  3. GABAPENTIN. [Concomitant]
     Active Substance: GABAPENTIN
  4. FERROUS SULFATE. [Concomitant]
     Active Substance: FERROUS SULFATE
  5. AMLODIPINE [Concomitant]
     Active Substance: AMLODIPINE BESYLATE
  6. MELOXICAM. [Concomitant]
     Active Substance: MELOXICAM
  7. METAMUCIL FREE + NATURAL [Concomitant]
  8. HYDROCHLOROTHIAZIDE. [Concomitant]
     Active Substance: HYDROCHLOROTHIAZIDE
  9. ASPIRIN. [Concomitant]
     Active Substance: ASPIRIN
  10. IMATINIB MESYLATE. [Suspect]
     Active Substance: IMATINIB MESYLATE
     Indication: GASTROINTESTINAL STROMAL TUMOUR
     Route: 048
     Dates: start: 20181025
  11. AMBIEN [Concomitant]
     Active Substance: ZOLPIDEM TARTRATE
  12. DOCUSATE [Concomitant]
     Active Substance: DOCUSATE
  13. METFORMIN [Concomitant]
     Active Substance: METFORMIN HYDROCHLORIDE

REACTIONS (9)
  - Gait inability [None]
  - Red blood cell count decreased [None]
  - Back pain [None]
  - Pain in extremity [None]
  - Decreased appetite [None]
  - Arthralgia [None]
  - Headache [None]
  - Tremor [None]
  - Fatigue [None]
